FAERS Safety Report 9554594 (Version 2)
Quarter: 2013Q4

REPORT INFORMATION
  Report Type: Spontaneous
  Country: US (occurrence: US)
  Receive Date: 20130925
  Receipt Date: 20131009
  Transmission Date: 20140711
  Serious: Yes (Hospitalization)
  Sender: FDA-Public Use
  Company Number: US-BAXTER-2013BAX036752

PATIENT
  Age: 71 Year
  Sex: Male

DRUGS (1)
  1. DIANEAL LOW CALCIUM (ULTRABAG) [Suspect]
     Indication: PERITONEAL DIALYSIS
     Dosage: 2 BAGS
     Route: 033
     Dates: start: 201307, end: 201307

REACTIONS (4)
  - Ulcer haemorrhage [Recovered/Resolved]
  - Catheter site infection [Recovering/Resolving]
  - Blood creatine decreased [Recovering/Resolving]
  - Device related infection [Recovered/Resolved]
